FAERS Safety Report 13791076 (Version 1)
Quarter: 2017Q3

REPORT INFORMATION
  Report Type: Spontaneous
  Country: FR (occurrence: FR)
  Receive Date: 20170725
  Receipt Date: 20170725
  Transmission Date: 20171127
  Serious: Yes (Hospitalization)
  Sender: FDA-Public Use
  Company Number: FR-PFIZER INC-1148578

PATIENT
  Age: 42 Year
  Sex: Female

DRUGS (2)
  1. ATRACURIUM BESILATE [Suspect]
     Active Substance: ATRACURIUM BESYLATE
     Indication: PRODUCT USED FOR UNKNOWN INDICATION
     Dosage: UNK
     Route: 042
     Dates: start: 20111110, end: 20111110
  2. DEBRIDAT /00465201/ [Suspect]
     Active Substance: TRIMEBUTINE MALEATE
     Indication: COLONOSCOPY
     Dosage: UNK
     Route: 042
     Dates: start: 20111110, end: 20111110

REACTIONS (2)
  - Drug administration error [Recovered/Resolved]
  - Adverse event [Recovered/Resolved]

NARRATIVE: CASE EVENT DATE: 20111110
